FAERS Safety Report 8240525-4 (Version None)
Quarter: 2012Q1

REPORT INFORMATION
  Report Type: 
  Country: None (occurrence: None)
  Receive Date: 20120328
  Receipt Date: 20120323
  Transmission Date: 20120608
  Serious: Yes (Disabling, Other)
  Sender: FDA-Public Use
  Company Number: BR-SANOFI-AVENTIS-2012SA020602

PATIENT
  Age: 36 Year
  Sex: Male
  Weight: 85 kg

DRUGS (5)
  1. LANTUS [Suspect]
     Route: 065
     Dates: start: 20070101
  2. OLMESARTAN MEDOXOMIL [Concomitant]
     Indication: BLOOD PRESSURE
  3. LASIX [Concomitant]
     Indication: FLUID RETENTION
  4. OPTIPEN [Suspect]
     Indication: DEVICE THERAPY
     Dates: start: 20070101
  5. AMLODIPINE BESYLATE [Concomitant]

REACTIONS (3)
  - BLINDNESS [None]
  - CATARACT [None]
  - DIABETIC RETINOPATHY [None]
